FAERS Safety Report 19416112 (Version 1)
Quarter: 2021Q2

REPORT INFORMATION
  Report Type: Spontaneous
  Country: CN (occurrence: CN)
  Receive Date: 20210615
  Receipt Date: 20210615
  Transmission Date: 20210717
  Serious: Yes (Hospitalization)
  Sender: FDA-Public Use
  Company Number: CN-BAXTER-2021BAX016089

PATIENT
  Age: 27 Year
  Sex: Male
  Weight: 65 kg

DRUGS (4)
  1. HOLOXAN [Suspect]
     Active Substance: IFOSFAMIDE
     Indication: OSTEOSARCOMA
     Dosage: HOLOXAN + NORMAL SALINE (NS) 500 ML
     Route: 041
     Dates: start: 20210403, end: 20210406
  2. 0.9% SODIUM CHLORIDE INJECTION [Suspect]
     Active Substance: SODIUM CHLORIDE
     Indication: MEDICATION DILUTION
     Dosage: NS + HOLOXAN 4.5 G
     Route: 041
     Dates: start: 20210403, end: 20210406
  3. ETOPOSIDE. [Suspect]
     Active Substance: ETOPOSIDE
     Indication: OSTEOSARCOMA
     Dosage: ETOPOSIDE + NS 500 ML
     Route: 041
     Dates: start: 20210403, end: 20210406
  4. 0.9% SODIUM CHLORIDE INJECTION [Suspect]
     Active Substance: SODIUM CHLORIDE
     Dosage: NS + ETOPOSIDE 110 MG
     Route: 041
     Dates: start: 20210403, end: 20210406

REACTIONS (1)
  - Myelosuppression [Recovering/Resolving]

NARRATIVE: CASE EVENT DATE: 20210412
